FAERS Safety Report 8494462-0 (Version None)
Quarter: 2012Q3

REPORT INFORMATION
  Report Type: 
  Country: None (occurrence: None)
  Receive Date: 20120709
  Receipt Date: 20120702
  Transmission Date: 20120928
  Serious: Yes (Other)
  Sender: FDA-Public Use
  Company Number: US-BAYER-200940899NA

PATIENT
  Age: 49 Year
  Sex: Male
  Weight: 112 kg

DRUGS (14)
  1. HEPARIN [Concomitant]
  2. PROZAC [Concomitant]
     Dosage: 40 MG, QOD
     Route: 048
  3. FENTANYL-100 [Concomitant]
     Dosage: UNK
     Dates: start: 20031104, end: 20031104
  4. PROPOFOL [Concomitant]
     Dosage: UNK
     Dates: start: 20031104, end: 20031104
  5. MIDAZOLAM [Concomitant]
  6. VECURONIUM BROMIDE [Concomitant]
     Dosage: UNK
     Route: 048
     Dates: start: 20031104, end: 20031104
  7. DOPAMINE HCL [Concomitant]
     Dosage: UNK
     Dates: start: 20031104, end: 20031104
  8. HYDROCHLOROTHIAZIDE [Concomitant]
     Dosage: 25 MG, QOD
     Route: 048
  9. PANCURONIUM BROMIDE [Concomitant]
     Dosage: UNK
     Dates: start: 20031104, end: 20031104
  10. ALLOPURINOL [Concomitant]
     Dosage: 300 MG, QOD
     Route: 048
  11. PROTAMINE SULFATE [Concomitant]
  12. TRASYLOL [Suspect]
     Indication: CORONARY ARTERY BYPASS
     Dosage: UNK
     Dates: start: 20031109
  13. ZOCOR [Concomitant]
  14. THIOPENTAL SODIUM [Concomitant]

REACTIONS (11)
  - ANXIETY [None]
  - FEAR [None]
  - MULTI-ORGAN FAILURE [None]
  - RENAL INJURY [None]
  - ANHEDONIA [None]
  - RENAL FAILURE [None]
  - DEPRESSION [None]
  - DISABILITY [None]
  - INJURY [None]
  - UNEVALUABLE EVENT [None]
  - PAIN [None]
